FAERS Safety Report 8431187-1 (Version None)
Quarter: 2012Q2

REPORT INFORMATION
  Report Type: 
  Country: None (occurrence: None)
  Receive Date: 20120612
  Receipt Date: 20120607
  Transmission Date: 20120825
  Serious: Yes (Other)
  Sender: FDA-Public Use
  Company Number: PHHY2011AU03890

PATIENT
  Sex: Female

DRUGS (3)
  1. INTERFERON ALFA [Suspect]
     Dates: end: 20101001
  2. IMATINIB MESYLATE [Suspect]
     Indication: CHRONIC MYELOID LEUKAEMIA
     Route: 048
     Dates: start: 20010101, end: 20080401
  3. IMATINIB MESYLATE [Suspect]
     Dosage: 400 (UNKNOWN DETAILS)
     Route: 048
     Dates: start: 20101123

REACTIONS (3)
  - MATERNAL EXPOSURE BEFORE PREGNANCY [None]
  - GESTATIONAL DIABETES [None]
  - NORMAL NEWBORN [None]
